FAERS Safety Report 16100306 (Version 4)
Quarter: 2019Q2

REPORT INFORMATION
  Report Type: Report from Study
  Country: US (occurrence: US)
  Receive Date: 20190321
  Receipt Date: 20190529
  Transmission Date: 20190711
  Serious: No
  Sender: FDA-Public Use
  Company Number: PHEH2019US011800

PATIENT
  Sex: Male
  Weight: 65.31 kg

DRUGS (2)
  1. ENTRESTO [Suspect]
     Active Substance: SACUBITRIL\VALSARTAN
     Indication: CARDIAC FAILURE
     Dosage: UNK
     Route: 048
  2. ENTRESTO [Suspect]
     Active Substance: SACUBITRIL\VALSARTAN
     Dosage: 3 DF(ONE SACUBITRIL 49 MG/VALSARTAN 51 MG IN AM AND TWO SACUBITRIL 49 MG/VALSARTAN 51 MG IN PM), UNK
     Route: 048

REACTIONS (7)
  - Weight fluctuation [Unknown]
  - Arthralgia [Unknown]
  - Meniscus injury [Unknown]
  - Arthritis [Unknown]
  - Hypotension [Unknown]
  - Gait disturbance [Unknown]
  - Fluid retention [Unknown]
